FAERS Safety Report 8770377 (Version 2)
Quarter: 2012Q4

REPORT INFORMATION
  Report Type: 
  Country: ZA (occurrence: ZA)
  Receive Date: 20120906
  Receipt Date: 20120911
  Transmission Date: 20130627
  Serious: Yes (Other)
  Sender: FDA-Public Use
  Company Number: ZA-JNJFOC-20120814170

PATIENT
  Age: 32 Year
  Sex: Female

DRUGS (5)
  1. LISTERINE TOTAL CARE [Suspect]
     Indication: GINGIVAL BLEEDING
     Route: 002
  2. LISTERINE TOTAL CARE [Suspect]
     Indication: GINGIVAL PAIN
     Route: 002
  3. LISTERINE TOTAL CARE [Suspect]
     Indication: BREATH ODOUR
     Route: 002
  4. OSTEOEZE [Concomitant]
     Indication: ARTHRALGIA
     Route: 048
  5. CONTRACEPTIVE INJECTION NOS [Concomitant]
     Indication: CONTRACEPTION
     Route: 065

REACTIONS (10)
  - Gingival bleeding [Not Recovered/Not Resolved]
  - Gingival pain [Not Recovered/Not Resolved]
  - Oral pain [Not Recovered/Not Resolved]
  - Swelling face [Not Recovered/Not Resolved]
  - Lymphadenopathy [Not Recovered/Not Resolved]
  - Gingival recession [Not Recovered/Not Resolved]
  - Loose tooth [Not Recovered/Not Resolved]
  - Tooth disorder [Not Recovered/Not Resolved]
  - Drug ineffective [Unknown]
  - Expired drug administered [Unknown]
